FAERS Safety Report 20810958 (Version 9)
Quarter: 2022Q3

REPORT INFORMATION
  Report Type: Report from Study
  Country: JP (occurrence: JP)
  Receive Date: 20220510
  Receipt Date: 20220926
  Transmission Date: 20221027
  Serious: Yes (Hospitalization)
  Sender: FDA-Public Use
  Company Number: JP-SEATTLE GENETICS-2022SGN04427

PATIENT
  Age: 60 Year
  Sex: Female
  Weight: 65.9 kg

DRUGS (16)
  1. TISOTUMAB VEDOTIN [Suspect]
     Active Substance: TISOTUMAB VEDOTIN
     Indication: Cervix carcinoma
     Dosage: 2.0 MG/KG, Q3WEEKS
     Route: 042
     Dates: start: 20220407, end: 20220428
  2. OLMESARTAN [Concomitant]
     Active Substance: OLMESARTAN
     Indication: Hypertension
     Dosage: 20 MG
     Dates: start: 2016
  3. AMLODIPINE [Concomitant]
     Active Substance: AMLODIPINE BESYLATE
     Indication: Hypertension
     Dosage: 10 MG
     Dates: start: 2016
  4. PETROLATUM [Concomitant]
     Active Substance: PETROLATUM
     Indication: Dermatitis atopic
     Dosage: 1 APPLICATION
     Dates: start: 2022
  5. LEVOCETIRIZINE [Concomitant]
     Active Substance: LEVOCETIRIZINE
     Indication: Seasonal allergy
     Dosage: 5 MG
     Dates: start: 2016
  6. TACROLIMUS [Concomitant]
     Active Substance: TACROLIMUS
     Indication: Dermatitis atopic
     Dosage: 1 APPLICATION
     Dates: start: 2016
  7. HEPARINOID [Concomitant]
     Indication: Dermatitis atopic
     Dosage: 1 APPLICATION
     Dates: start: 2016
  8. PETROLATUM [Concomitant]
     Active Substance: PETROLATUM
     Indication: Seasonal allergy
     Dosage: 1 APPLICATION
     Dates: start: 2022
  9. DEXAMETHASONE [Concomitant]
     Active Substance: DEXAMETHASONE
     Indication: Dermatitis atopic
     Dosage: 1 APPLICATION
     Dates: start: 2016
  10. BEPOTASTINE [Concomitant]
     Active Substance: BEPOTASTINE
     Indication: Rash
     Dosage: 10 MG
     Dates: start: 20220415
  11. BETAMETHASONE [Concomitant]
     Active Substance: BETAMETHASONE
     Indication: Rash
     Dosage: 1 APPLICATION
     Dates: start: 20220415
  12. DIPHENHYDRAMINE [Concomitant]
     Active Substance: DIPHENHYDRAMINE
     Indication: Rash
     Dosage: 1 APPLICATION
     Dates: start: 20220419
  13. OZENOXACIN [Concomitant]
     Active Substance: OZENOXACIN
     Indication: Rash
     Dosage: 1 APPLICATION
     Dates: start: 20220419
  14. URSODIOL [Concomitant]
     Active Substance: URSODIOL
     Indication: Alanine aminotransferase increased
     Dosage: 100 MG
     Dates: start: 20220407, end: 20220415
  15. URSODIOL [Concomitant]
     Active Substance: URSODIOL
     Indication: Aspartate aminotransferase increased
     Dosage: 300 MG, QD
  16. ACETAMINOPHEN [Concomitant]
     Active Substance: ACETAMINOPHEN
     Indication: Pain
     Dosage: 500 MG
     Dates: start: 20220407, end: 20220415

REACTIONS (3)
  - Stevens-Johnson syndrome [Recovered/Resolved]
  - Febrile neutropenia [Recovered/Resolved]
  - Ileus paralytic [Recovered/Resolved]

NARRATIVE: CASE EVENT DATE: 20220506
